FAERS Safety Report 22376246 (Version 1)
Quarter: 2023Q2

REPORT INFORMATION
  Report Type: Spontaneous
  Country: US (occurrence: US)
  Receive Date: 20230527
  Receipt Date: 20230527
  Transmission Date: 20230722
  Serious: Yes (Death, Other)
  Sender: FDA-Public Use
  Company Number: US-JNJFOC-20230543357

PATIENT

DRUGS (1)
  1. ACETAMINOPHEN [Suspect]
     Active Substance: ACETAMINOPHEN
     Indication: Product used for unknown indication
     Route: 065

REACTIONS (4)
  - Suspected suicide [Fatal]
  - Suspected suicide attempt [Unknown]
  - Drug abuse [Unknown]
  - Intentional product misuse [Unknown]
